FAERS Safety Report 7186291-5 (Version None)
Quarter: 2010Q4

REPORT INFORMATION
  Report Type: 
  Country: None (occurrence: None)
  Receive Date: 20101222
  Receipt Date: 20100617
  Transmission Date: 20110411
  Serious: No
  Sender: FDA-Public Use
  Company Number: US-AMGEN-TCS419143

PATIENT

DRUGS (1)
  1. ENBREL [Suspect]
     Indication: RHEUMATOID ARTHRITIS
     Dosage: 25 MG, 2 TIMES/WK
     Route: 058
     Dates: start: 20030201

REACTIONS (5)
  - HEADACHE [None]
  - HERPES ZOSTER [None]
  - INJECTION SITE PAIN [None]
  - RASH [None]
  - SKIN DISORDER [None]
